FAERS Safety Report 8485853 (Version 9)
Quarter: 2013Q1

REPORT INFORMATION
  Report Type: Spontaneous
  Country: US (occurrence: US)
  Receive Date: 20120330
  Receipt Date: 20130117
  Transmission Date: 20140127
  Serious: Yes (Hospitalization, Disabling, Other)
  Sender: FDA-Public Use
  Company Number: US-009507513-1203USA03317

PATIENT
  Sex: 0

DRUGS (17)
  1. FOSAMAX [Suspect]
     Indication: OSTEOPOROSIS PROPHYLAXIS
     Dosage: UNK
     Route: 048
     Dates: start: 199510
  2. FOSAMAX [Suspect]
     Indication: OSTEOPOROSIS
     Dosage: 70 MG, QW
     Route: 048
  3. FOSAMAX [Suspect]
     Dosage: 10 MG, QD
     Route: 048
     Dates: start: 20000420
  4. FOSAMAX [Suspect]
     Indication: OSTEOPOROSIS PROPHYLAXIS
     Dosage: 70 MG, UNK
     Route: 048
  5. ADVAIR [Concomitant]
     Indication: ASTHMA
     Dosage: 250/50 MCG BID
     Route: 055
     Dates: start: 2006, end: 2011
  6. CORTICOSTEROIDS (UNSPECIFIED) [Concomitant]
     Dates: start: 1980, end: 201202
  7. COMBIVENT [Concomitant]
     Indication: ASTHMA
  8. SINGULAIR [Concomitant]
     Indication: ASTHMA
     Dosage: 10 MG, QD
     Route: 048
  9. CALCIUM (UNSPECIFIED) [Concomitant]
     Indication: OSTEOPOROSIS
  10. AZMACORT [Concomitant]
     Indication: ASTHMA
     Dates: start: 19930601
  11. ATROVENT [Concomitant]
     Indication: ASTHMA
  12. CELESTONE (BETAMETHASONE SODIUM PHOSPHATE (+) SULFACETAMIDE SODIUM) [Concomitant]
  13. SEREVENT [Concomitant]
     Indication: ASTHMA
  14. THEO-24 [Concomitant]
     Indication: ASTHMA
  15. PROVENTIL [Concomitant]
     Indication: ASTHMA
  16. ACTONEL [Concomitant]
     Indication: OSTEOPOROSIS PROPHYLAXIS
     Dosage: 30/35
     Dates: start: 200305, end: 200309
  17. ALBUTEROL [Concomitant]
     Indication: ASTHMA
     Dosage: 1 PUFF Q 6 HRS.
     Route: 055

REACTIONS (89)
  - Open reduction of fracture [Unknown]
  - Internal fixation of fracture [Unknown]
  - Low turnover osteopathy [Unknown]
  - Blood pressure increased [Recovering/Resolving]
  - Haemophilus infection [Recovering/Resolving]
  - Electrocardiogram abnormal [Unknown]
  - Dilatation atrial [Unknown]
  - Status asthmaticus [Unknown]
  - Osteoarthritis [Unknown]
  - Knee arthroplasty [Unknown]
  - Osteoporosis [Unknown]
  - Deafness neurosensory [Unknown]
  - Anaemia postoperative [Unknown]
  - Pyrexia [Recovered/Resolved]
  - Stress fracture [Recovering/Resolving]
  - Femur fracture [Unknown]
  - Skeletal injury [Unknown]
  - Osteoarthritis [Unknown]
  - Vitreous floaters [Unknown]
  - Arthropathy [Unknown]
  - Eye disorder [Unknown]
  - Pneumonia [Unknown]
  - Adverse drug reaction [Recovering/Resolving]
  - Device related infection [Unknown]
  - Vision blurred [Unknown]
  - Somnolence [Unknown]
  - Retinal detachment [Unknown]
  - Cataract [Unknown]
  - Herpes zoster [Recovered/Resolved with Sequelae]
  - Sacroiliitis [Unknown]
  - Upper respiratory tract infection [Unknown]
  - Cataract [Unknown]
  - Hand deformity [Unknown]
  - Arthritis [Unknown]
  - Urinary tract infection [Unknown]
  - Dermatitis [Unknown]
  - Temporomandibular joint syndrome [Unknown]
  - Large intestine polyp [Unknown]
  - Rectal polyp [Unknown]
  - Haemorrhoids [Unknown]
  - Exostosis [Unknown]
  - Tinnitus [Unknown]
  - Nasal obstruction [Unknown]
  - Cataract [Unknown]
  - Weight increased [Unknown]
  - Cartilage injury [Unknown]
  - Mitral valve disease [Unknown]
  - Cardiomegaly [Unknown]
  - Bronchitis [Unknown]
  - Asthma [Unknown]
  - Osteoarthritis [Not Recovered/Not Resolved]
  - Aortic valve incompetence [Unknown]
  - Sleep disorder [Unknown]
  - Carotid bruit [Unknown]
  - Carotid bruit [Unknown]
  - Osteoarthritis [Unknown]
  - Vertigo CNS origin [Unknown]
  - Meniere^s disease [Unknown]
  - Vestibular disorder [Unknown]
  - Cerumen impaction [Unknown]
  - Hypertension [Unknown]
  - Sinus tachycardia [Unknown]
  - Intervertebral disc degeneration [Unknown]
  - Hypercholesterolaemia [Unknown]
  - Head injury [Unknown]
  - Hernia [Unknown]
  - Cervical radiculopathy [Unknown]
  - Appendix disorder [Unknown]
  - Cardiac hypertrophy [Unknown]
  - Gallbladder disorder [Unknown]
  - Renal disorder [Unknown]
  - Venous insufficiency [Unknown]
  - Wound dehiscence [Not Recovered/Not Resolved]
  - Necrosis [Unknown]
  - Chest pain [Unknown]
  - Urine leukocyte esterase positive [Unknown]
  - Nitrite urine present [Unknown]
  - White blood cells urine positive [Unknown]
  - Vomiting [Unknown]
  - Constipation [Unknown]
  - Gastrooesophageal reflux disease [Unknown]
  - Back pain [Unknown]
  - Musculoskeletal chest pain [Unknown]
  - Oedema peripheral [Unknown]
  - Nausea [Unknown]
  - Neck pain [Unknown]
  - Dizziness [Recovering/Resolving]
  - Headache [Unknown]
  - Abdominal pain upper [Unknown]
